FAERS Safety Report 25046102 (Version 1)
Quarter: 2025Q1

REPORT INFORMATION
  Report Type: Spontaneous
  Country: CA (occurrence: CA)
  Receive Date: 20250306
  Receipt Date: 20250306
  Transmission Date: 20250409
  Serious: Yes (Other)
  Sender: AMGEN
  Company Number: CA-AMGEN-CANSP2025040941

PATIENT
  Age: 30 Year
  Sex: Female

DRUGS (8)
  1. RITUXIMAB [Suspect]
     Active Substance: RITUXIMAB
     Indication: Immune-mediated myositis
     Route: 065
  2. RITUXIMAB [Suspect]
     Active Substance: RITUXIMAB
     Route: 065
  3. FILGRASTIM [Suspect]
     Active Substance: FILGRASTIM
     Indication: Haematopoietic stem cell mobilisation
     Route: 065
  4. PREDNISONE [Concomitant]
     Active Substance: PREDNISONE
     Indication: Immune-mediated myositis
  5. Immunoglobulin [Concomitant]
     Indication: Immune-mediated myositis
     Route: 040
  6. Immunoglobulin [Concomitant]
     Dosage: UNK UNK, QMO 2 GRAM PER KILOGRAM
     Route: 040
  7. METHOTREXATE [Concomitant]
     Active Substance: METHOTREXATE
     Indication: Immune-mediated myositis
     Dosage: 15 MILLIGRAM, QWK
  8. MYCOPHENOLATE MOFETIL [Concomitant]
     Active Substance: MYCOPHENOLATE MOFETIL
     Indication: Immune-mediated myositis
     Dosage: 1000 MILLIGRAM, BID

REACTIONS (3)
  - Immune-mediated myositis [Unknown]
  - Drug effective for unapproved indication [Unknown]
  - Off label use [Unknown]
